FAERS Safety Report 20485408 (Version 1)
Quarter: 2022Q1

REPORT INFORMATION
  Report Type: Spontaneous
  Country: US (occurrence: US)
  Receive Date: 20220217
  Receipt Date: 20220217
  Transmission Date: 20220423
  Serious: Yes (Other)
  Sender: FDA-Public Use
  Company Number: US-ELI_LILLY_AND_COMPANY-US202202003915

PATIENT
  Age: 51 Year
  Sex: Female

DRUGS (4)
  1. CYRAMZA [Suspect]
     Active Substance: RAMUCIRUMAB
     Indication: Product used for unknown indication
     Dosage: UNK UNK, UNKNOWN
     Route: 065
  2. ALIMTA [Suspect]
     Active Substance: PEMETREXED DISODIUM
     Indication: Product used for unknown indication
     Dosage: UNK UNK, UNKNOWN
     Route: 065
  3. TAXOTERE [Concomitant]
     Active Substance: DOCETAXEL
     Indication: Product used for unknown indication
  4. TAGRISSO [Concomitant]
     Active Substance: OSIMERTINIB
     Indication: Product used for unknown indication

REACTIONS (6)
  - Lung neoplasm [Unknown]
  - Breast cancer [Unknown]
  - Mental status changes [Unknown]
  - Diplopia [Unknown]
  - Vertigo [Unknown]
  - Headache [Unknown]
